FAERS Safety Report 14472854 (Version 1)
Quarter: 2018Q1

REPORT INFORMATION
  Report Type: Spontaneous
  Country: FR (occurrence: FR)
  Receive Date: 20180201
  Receipt Date: 20180201
  Transmission Date: 20180509
  Serious: Yes (Other)
  Sender: FDA-Public Use
  Company Number: FR-MERCK KGAA-2041185

PATIENT
  Age: 43 Year
  Sex: Female
  Weight: 97 kg

DRUGS (4)
  1. NOVOTHYROX [Suspect]
     Active Substance: LEVOTHYROXINE SODIUM
     Indication: HYPOTHYROIDISM
     Route: 048
     Dates: start: 20170421, end: 20171122
  2. ZYMA [Concomitant]
     Active Substance: ERGOCALCIFEROL
  3. LEVOTHYROX [Suspect]
     Active Substance: LEVOTHYROXINE
  4. DOLIPRANE [Concomitant]
     Active Substance: ACETAMINOPHEN

REACTIONS (15)
  - Diarrhoea [Recovered/Resolved]
  - Fatigue [Recovered/Resolved]
  - Peripheral swelling [Recovered/Resolved]
  - Groin pain [Recovered/Resolved]
  - Pain in extremity [Recovered/Resolved]
  - Blood thyroid stimulating hormone increased [Recovered/Resolved]
  - Amnesia [Recovered/Resolved]
  - Peripheral vascular disorder [Recovered/Resolved]
  - Suicidal ideation [Recovered/Resolved]
  - Weight increased [Recovered/Resolved]
  - Disturbance in attention [Recovered/Resolved]
  - Depression [Recovered/Resolved]
  - Hyperhidrosis [Recovered/Resolved]
  - Headache [Recovered/Resolved]
  - Product formulation issue [Recovered/Resolved]

NARRATIVE: CASE EVENT DATE: 2017
